FAERS Safety Report 16802689 (Version 1)
Quarter: 2019Q3

REPORT INFORMATION
  Report Type: Spontaneous
  Country: US (occurrence: US)
  Receive Date: 20190912
  Receipt Date: 20190912
  Transmission Date: 20191005
  Serious: Yes (Other)
  Sender: FDA-Public Use
  Company Number: US-AMGEN INC.-USASP2019148012

PATIENT
  Age: 63 Year
  Sex: Female

DRUGS (11)
  1. VALPROATE [Concomitant]
     Active Substance: VALPROIC ACID
     Indication: MIGRAINE
     Dosage: 500 MILLIGRAM
     Route: 065
  2. KETAMINE [Suspect]
     Active Substance: KETAMINE
     Indication: MIGRAINE
     Dosage: NASAL SPRAY, LATER RECEIVED SUB-ANESTHETIC INFUSION (UP TO 45 MG/HR)
     Route: 065
  3. DIHYDROERGOTAMINE [Suspect]
     Active Substance: DIHYDROERGOTAMINE
     Indication: MIGRAINE
     Dosage: FOLLOWING HER 4 TH DOSE OF INTRAVENOUS DHE (0.25MG)
     Route: 065
  4. VERAPAMIL [Concomitant]
     Active Substance: VERAPAMIL HYDROCHLORIDE
     Dosage: UNK
  5. ERENUMAB [Suspect]
     Active Substance: ERENUMAB
     Indication: MIGRAINE PROPHYLAXIS
     Dosage: UNK
     Route: 065
  6. LIDOCAINE. [Concomitant]
     Active Substance: LIDOCAINE
     Indication: MIGRAINE
     Dosage: UNK
  7. MORPHINE [Concomitant]
     Active Substance: MORPHINE
     Indication: MIGRAINE
     Route: 048
  8. AMITRIPTYLINE [Concomitant]
     Active Substance: AMITRIPTYLINE
     Indication: MIGRAINE PROPHYLAXIS
     Dosage: UNK
  9. DULOXETINE. [Concomitant]
     Active Substance: DULOXETINE
     Indication: MIGRAINE PROPHYLAXIS
     Dosage: UNK
  10. PROMETHAZINE [Concomitant]
     Active Substance: PROMETHAZINE HYDROCHLORIDE
     Indication: MIGRAINE
     Dosage: UNK
  11. METHYLPREDNISOLONE. [Concomitant]
     Active Substance: METHYLPREDNISOLONE
     Indication: MIGRAINE
     Dosage: UNK

REACTIONS (3)
  - Reversible cerebral vasoconstriction syndrome [Unknown]
  - Medication overuse headache [Unknown]
  - Posterior reversible encephalopathy syndrome [Unknown]
